FAERS Safety Report 18490736 (Version 1)
Quarter: 2020Q4

REPORT INFORMATION
  Report Type: Spontaneous
  Country: IT (occurrence: IT)
  Receive Date: 20201111
  Receipt Date: 20201111
  Transmission Date: 20210114
  Serious: Yes (Other)
  Sender: FDA-Public Use
  Company Number: IT-AMGEN-ITASP2020180047

PATIENT
  Age: 50 Year
  Weight: 97 kg

DRUGS (5)
  1. AMGEVITA [Suspect]
     Active Substance: ADALIMUMAB
     Dosage: UNK
     Route: 058
  2. DAPSONE. [Concomitant]
     Active Substance: DAPSONE
     Indication: PYODERMA GANGRENOSUM
     Dosage: 50 MILLIGRAM
     Route: 048
  3. AMGEVITA [Suspect]
     Active Substance: ADALIMUMAB
     Dosage: UNK
     Route: 058
  4. AMGEVITA [Suspect]
     Active Substance: ADALIMUMAB
     Indication: PYODERMA GANGRENOSUM
     Dosage: 40 MILLIGRAM, QWK
     Route: 058
     Dates: start: 20190530, end: 20190821
  5. REUMAFLEX [ADENOSINE PHOSPHATE;AMINOPROPYRON;CYANOCOBALAMIN;THIAMINE H [Concomitant]
     Indication: PYODERMA GANGRENOSUM
     Dosage: 10 MILLIGRAM
     Route: 058

REACTIONS (1)
  - Absence of immediate treatment response [Recovered/Resolved]

NARRATIVE: CASE EVENT DATE: 20190719
